FAERS Safety Report 7373636-6 (Version None)
Quarter: 2011Q1

REPORT INFORMATION
  Report Type: 
  Country: None (occurrence: None)
  Receive Date: 20110325
  Receipt Date: 20101020
  Transmission Date: 20110831
  Serious: Yes (Hospitalization)
  Sender: FDA-Public Use
  Company Number: US-BAYER-201010377NA

PATIENT
  Sex: Female
  Weight: 91 kg

DRUGS (24)
  1. MOBIC [Concomitant]
     Indication: BACK PAIN
  2. ULTRAM [Concomitant]
     Indication: NECK PAIN
  3. TOPROL-XL [Concomitant]
  4. MOTRIN [Concomitant]
     Indication: BACK PAIN
  5. DARVOCET [Concomitant]
     Indication: NECK PAIN
     Dosage: UNK
     Dates: start: 20070706
  6. MAXIDEX [Concomitant]
  7. PARAFON FORTE [Concomitant]
     Route: 048
  8. NAPRELAN [Concomitant]
     Dosage: 850 MG (DAILY DOSE), ONCE, ORAL
     Route: 048
  9. TRIAMTEREN [Concomitant]
  10. MAXZIDE [Concomitant]
     Dates: start: 20050101
  11. TIZANIDINE [Concomitant]
     Indication: MUSCLE RELAXANT THERAPY
     Dosage: 2 MG, BID
  12. ADVIL LIQUI-GELS [Concomitant]
  13. YAZ [Suspect]
     Indication: PRODUCT USED FOR UNKNOWN INDICATION
     Route: 048
     Dates: start: 20070501, end: 20071115
  14. ALEVE [Concomitant]
     Indication: BACK PAIN
  15. VICODIN [Concomitant]
  16. IBUPROFEN [Concomitant]
     Indication: BACK PAIN
  17. ANTIBIOTICS [Concomitant]
     Dates: start: 20050101, end: 20080615
  18. FLEXERIL [Concomitant]
     Indication: NECK PAIN
  19. MOBIC [Concomitant]
     Indication: NECK PAIN
  20. HYDROCODONE BITARTRATE [Concomitant]
     Dosage: UP TO 1 TABLET Q.D. P.R.N
  21. SKELAXIN [Concomitant]
     Dosage: 800 MG, TID
     Dates: start: 20070901
  22. MEDROL [Concomitant]
     Indication: NECK PAIN
  23. LYRICA [Concomitant]
     Route: 048
  24. CHANTIX [Concomitant]
     Dosage: UNK
     Dates: start: 20070701

REACTIONS (5)
  - GAIT DISTURBANCE [None]
  - PULMONARY EMBOLISM [None]
  - PAIN IN EXTREMITY [None]
  - MUSCLE SPASMS [None]
  - DEEP VEIN THROMBOSIS [None]
